FAERS Safety Report 5722403-5 (Version None)
Quarter: 2008Q2

REPORT INFORMATION
  Report Type: 
  Country: None (occurrence: None)
  Receive Date: 20080429
  Receipt Date: 20080423
  Transmission Date: 20081010
  Serious: Yes (Hospitalization)
  Sender: FDA-Public Use
  Company Number: AU-MERCK-0804AUS00253

PATIENT
  Age: 36 Year
  Sex: Male
  Weight: 94 kg

DRUGS (6)
  1. PRIMAXIN [Suspect]
     Indication: INFECTION
     Route: 051
  2. AZITHROMYCIN [Concomitant]
     Indication: INFECTION
     Route: 065
  3. AZITHROMYCIN [Concomitant]
     Route: 065
  4. TOBRAMYCIN [Concomitant]
     Indication: INFECTION
     Route: 065
  5. CEFTAZIDIME [Concomitant]
     Indication: INFECTION
     Route: 065
  6. INSULIN [Concomitant]
     Route: 065

REACTIONS (13)
  - ASCITES [None]
  - BRONCHIECTASIS [None]
  - HEPATOCELLULAR INJURY [None]
  - HYPERSPLENISM [None]
  - MULTI-ORGAN FAILURE [None]
  - OSTEOPOROSIS [None]
  - PANCREATIC INSUFFICIENCY [None]
  - PANCREATITIS RELAPSING [None]
  - PATHOLOGICAL FRACTURE [None]
  - PORTAL HYPERTENSION [None]
  - PSEUDOMONAS INFECTION [None]
  - SPLENOMEGALY [None]
  - VARICES OESOPHAGEAL [None]
